FAERS Safety Report 15140254 (Version 1)
Quarter: 2018Q3

REPORT INFORMATION
  Report Type: Spontaneous
  Country: FR (occurrence: FR)
  Receive Date: 20180713
  Receipt Date: 20180713
  Transmission Date: 20181010
  Serious: Yes (Hospitalization, Other)
  Sender: FDA-Public Use
  Company Number: FR-AUROBINDO-AUR-APL-2018-034432

PATIENT
  Age: 42 Year
  Sex: Female
  Weight: 41 kg

DRUGS (1)
  1. PANTOPRAZOL ARROW 40 MG  POWDER FOR SOLUTION FOR INJECTION [Suspect]
     Active Substance: PANTOPRAZOLE SODIUM
     Indication: SMALL INTESTINAL ULCER PERFORATION
     Dosage: 80 MILLIGRAM, ONCE A DAY
     Route: 040
     Dates: start: 20180530, end: 20180621

REACTIONS (2)
  - Condition aggravated [Recovering/Resolving]
  - Thrombocytopenia [Recovering/Resolving]

NARRATIVE: CASE EVENT DATE: 20180604
